FAERS Safety Report 20322518 (Version 4)
Quarter: 2022Q1

REPORT INFORMATION
  Report Type: Report from Study
  Country: TH (occurrence: TH)
  Receive Date: 20220111
  Receipt Date: 20220220
  Transmission Date: 20220423
  Serious: Yes (Death, Life-Threatening, Hospitalization)
  Sender: FDA-Public Use
  Company Number: TH-NOVARTISPH-NVSC2021TH299968

PATIENT
  Age: 1 Year
  Sex: Male
  Weight: 14.6 kg

DRUGS (11)
  1. ZOLGENSMA [Suspect]
     Active Substance: ONASEMNOGENE ABEPARVOVEC-XIOI
     Indication: Spinal muscular atrophy
     Dosage: 85 ML
     Route: 042
     Dates: start: 20210927, end: 20210927
  2. PREDNISOLONE [Concomitant]
     Active Substance: PREDNISOLONE
     Indication: Hepatitis
     Dosage: 1 MKDAY, QD
     Route: 065
     Dates: start: 20210926, end: 20211026
  3. PREDNISOLONE [Concomitant]
     Active Substance: PREDNISOLONE
     Dosage: UNK (SIG 0.5 MKD PO OP)
     Route: 048
     Dates: start: 20211206, end: 20211207
  4. PREDNISOLONE [Concomitant]
     Active Substance: PREDNISOLONE
     Dosage: 0.5 MG/KG, QD
     Route: 065
  5. OMEPRAZOLE [Concomitant]
     Active Substance: OMEPRAZOLE
     Indication: Product used for unknown indication
     Dosage: 8 ML, BID (2 MG/ML)
     Route: 048
  6. FERROUS FUMARATE [Concomitant]
     Active Substance: FERROUS FUMARATE
     Indication: Product used for unknown indication
     Dosage: 2 ML, QD (15 MG/0.6ML)
     Route: 048
  7. VITAMINS [Concomitant]
     Active Substance: VITAMINS
     Indication: Product used for unknown indication
     Dosage: 2.5 ML, QD
     Route: 048
  8. VITAMIN D [Concomitant]
     Active Substance: VITAMIN D NOS
     Indication: Product used for unknown indication
     Dosage: 2 ML, QD (2000 IU/ML)
     Route: 048
     Dates: start: 20210814
  9. LACTULOSE [Concomitant]
     Active Substance: LACTULOSE
     Indication: Product used for unknown indication
     Dosage: 30 ML, PRN
     Route: 048
  10. DOMPERIDONE [Concomitant]
     Active Substance: DOMPERIDONE
     Indication: Product used for unknown indication
     Dosage: 3 ML, TID (5MG/5ML) BEFORE MEAL
     Route: 048
  11. FLUTICASONE [Concomitant]
     Active Substance: FLUTICASONE
     Indication: Product used for unknown indication
     Dosage: 125 UG, BID (1 PUFF VIA SPACER)
     Route: 048

REACTIONS (9)
  - Pneumonia [Fatal]
  - Obstructive airways disorder [Fatal]
  - Septic shock [Fatal]
  - Transaminases increased [Not Recovered/Not Resolved]
  - Pupil fixed [Fatal]
  - Mydriasis [Fatal]
  - Gastrointestinal haemorrhage [Fatal]
  - Arrhythmia [Fatal]
  - Hyperkalaemia [Fatal]

NARRATIVE: CASE EVENT DATE: 20211203
